FAERS Safety Report 9103482 (Version 2)
Quarter: 2013Q1

REPORT INFORMATION
  Report Type: Spontaneous
  Country: US (occurrence: US)
  Receive Date: 20130219
  Receipt Date: 20130311
  Transmission Date: 20140127
  Serious: Yes (Hospitalization)
  Sender: FDA-Public Use
  Company Number: US-GILEAD-2013-0069939

PATIENT
  Age: 67 Year
  Sex: Female

DRUGS (8)
  1. LETAIRIS [Suspect]
     Indication: PULMONARY ARTERIAL HYPERTENSION
     Dosage: 10 MG, QD
     Dates: start: 20110923
  2. LETAIRIS [Suspect]
     Indication: SCLERODERMA
  3. COUMADIN                           /00014802/ [Suspect]
  4. VENTAVIS [Concomitant]
  5. REVATIO [Concomitant]
  6. SYNTHROID [Concomitant]
  7. NIASPAN [Concomitant]
  8. BUMEX [Concomitant]

REACTIONS (9)
  - Haematochezia [Unknown]
  - Gastrointestinal haemorrhage [Recovered/Resolved]
  - Insomnia [Unknown]
  - Fungal infection [Unknown]
  - Thyroid function test abnormal [Unknown]
  - Chest pain [Unknown]
  - Large intestine polyp [Unknown]
  - Constipation [Unknown]
  - Oedema [Unknown]
